FAERS Safety Report 8201053-5 (Version None)
Quarter: 2012Q1

REPORT INFORMATION
  Report Type: 
  Country: None (occurrence: None)
  Receive Date: 20120312
  Receipt Date: 20120111
  Transmission Date: 20120608
  Serious: No
  Sender: FDA-Public Use
  Company Number: US-ABBOTT-12P-163-0893472-00

PATIENT
  Sex: Female

DRUGS (2)
  1. NORETHINDRONE ACETATE [Concomitant]
     Indication: PROGESTIN THERAPY
     Dates: start: 20110701
  2. LUPRON DEPOT [Suspect]
     Indication: ENDOMETRIOSIS
     Dates: start: 20110721

REACTIONS (3)
  - MENSTRUAL DISORDER [None]
  - MENORRHAGIA [None]
  - DRUG INEFFECTIVE [None]
